FAERS Safety Report 24053010 (Version 2)
Quarter: 2024Q3

REPORT INFORMATION
  Report Type: Spontaneous
  Country: US (occurrence: US)
  Receive Date: 20240705
  Receipt Date: 20240716
  Transmission Date: 20241016
  Serious: Yes (Death, Life-Threatening, Other)
  Sender: ALKEM
  Company Number: None

PATIENT
  Age: 68 Year
  Sex: Male
  Weight: 84 kg

DRUGS (6)
  1. MYCOPHENOLATE MOFETIL [Suspect]
     Active Substance: MYCOPHENOLATE MOFETIL
     Indication: Immunosuppressant drug therapy
     Dosage: 1 GRAM, BID (EVERY 12 HOUR)
     Route: 065
  2. MYCOPHENOLATE MOFETIL [Suspect]
     Active Substance: MYCOPHENOLATE MOFETIL
     Dosage: 1 GRAM
     Route: 065
  3. METHYLPREDNISOLONE [Suspect]
     Active Substance: METHYLPREDNISOLONE
     Indication: Immunosuppressant drug therapy
     Dosage: 40 MILLIGRAM, QD (EVERY 1 DAY)
     Route: 065
  4. METHYLPREDNISOLONE [Suspect]
     Active Substance: METHYLPREDNISOLONE
     Dosage: 1 GRAM
     Route: 042
  5. BASILIXIMAB [Suspect]
     Active Substance: BASILIXIMAB
     Indication: Immunosuppressant drug therapy
     Dosage: 20 MILLIGRAM
     Route: 042
  6. VALGANCICLOVIR [Concomitant]
     Active Substance: VALGANCICLOVIR
     Indication: Prophylaxis
     Dosage: UNK
     Route: 065

REACTIONS (9)
  - Acute kidney injury [Fatal]
  - Acute hepatic failure [Fatal]
  - Haemophagocytic lymphohistiocytosis [Fatal]
  - Multiple organ dysfunction syndrome [Fatal]
  - Sepsis [Fatal]
  - Cytokine release syndrome [Unknown]
  - Hypocomplementaemia [Unknown]
  - Haemodynamic instability [Unknown]
  - Shock [Unknown]
